FAERS Safety Report 26127834 (Version 1)
Quarter: 2025Q4

REPORT INFORMATION
  Report Type: Spontaneous
  Country: EU (occurrence: EU)
  Receive Date: 20251206
  Receipt Date: 20251206
  Transmission Date: 20260118
  Serious: Yes (Hospitalization, Other)
  Sender: AMNEAL
  Company Number: EU-AMNEAL PHARMACEUTICALS-2025-AMRX-04666

PATIENT
  Age: 57 Year
  Sex: Female

DRUGS (2)
  1. ALYMSYS [Suspect]
     Active Substance: BEVACIZUMAB-MALY
     Indication: Colorectal cancer metastatic
     Dosage: UNK
     Route: 065
  2. FLUOROURACIL\LEUCOVORIN CALCIUM\OXALIPLATIN [Concomitant]
     Active Substance: FLUOROURACIL\LEUCOVORIN CALCIUM\OXALIPLATIN
     Indication: Colorectal cancer metastatic
     Dosage: UNK
     Route: 065

REACTIONS (3)
  - Aortoenteric fistula [Recovering/Resolving]
  - Shock haemorrhagic [Recovered/Resolved]
  - Haematemesis [Recovering/Resolving]
